FAERS Safety Report 9547580 (Version 2)
Quarter: 2013Q3

REPORT INFORMATION
  Report Type: Spontaneous
  Country: FR (occurrence: FR)
  Receive Date: 20130924
  Receipt Date: 20130924
  Transmission Date: 20140515
  Serious: Yes (Hospitalization)
  Sender: FDA-Public Use
  Company Number: FR-SANOFI-AVENTIS-2013SA071963

PATIENT
  Age: 87 Year
  Sex: Male
  Weight: 95 kg

DRUGS (13)
  1. LASILIX [Suspect]
     Indication: OEDEMA
     Dosage: STRENGTH  AND DOSE :40MG 2 TABS DAILY
     Route: 048
     Dates: start: 20130228
  2. LASILIX [Suspect]
     Indication: CARDIAC FAILURE
     Dosage: STRENGTH  AND DOSE :40MG 2 TABS DAILY
     Route: 048
     Dates: start: 20130228
  3. LASILIX [Suspect]
     Indication: OEDEMA
     Dosage: STRENGTH 20 MG
     Route: 048
     Dates: start: 201306
  4. LASILIX [Suspect]
     Indication: CARDIAC FAILURE
     Dosage: STRENGTH 20 MG
     Route: 048
     Dates: start: 201306
  5. LASILIX [Suspect]
     Indication: OEDEMA
     Route: 048
  6. LASILIX [Suspect]
     Indication: CARDIAC FAILURE
     Route: 048
  7. LASILIX [Suspect]
     Indication: OEDEMA
     Dosage: STRENGTH 40 MG
     Route: 048
     Dates: start: 201306
  8. LASILIX [Suspect]
     Indication: CARDIAC FAILURE
     Dosage: STRENGTH 40 MG
     Route: 048
     Dates: start: 201306
  9. LASILIX [Suspect]
     Indication: OEDEMA
     Dosage: STRENGTH 40 MG
     Route: 048
     Dates: start: 20130705
  10. LASILIX [Suspect]
     Indication: CARDIAC FAILURE
     Dosage: STRENGTH 40 MG
     Route: 048
     Dates: start: 20130705
  11. FLUDROCORTISONE [Concomitant]
     Indication: ADDISON^S DISEASE
     Dosage: ONE ON THURSDAY AND ONE ON SUNDAY
  12. CRESTOR [Concomitant]
     Route: 048
     Dates: start: 201204
  13. PREVISCAN [Concomitant]
     Dosage: 3/4 TAB
     Route: 048
     Dates: start: 201204

REACTIONS (2)
  - Fatigue [Recovered/Resolved with Sequelae]
  - Oedema [Recovered/Resolved with Sequelae]
